FAERS Safety Report 12633156 (Version 2)
Quarter: 2016Q3

REPORT INFORMATION
  Report Type: Spontaneous
  Country: US (occurrence: US)
  Receive Date: 20160808
  Receipt Date: 20160808
  Transmission Date: 20161109
  Serious: No
  Sender: FDA-Public Use
  Company Number: US-BEH-2016058655

PATIENT
  Sex: Female
  Weight: 51 kg

DRUGS (9)
  1. EPIPEN [Concomitant]
     Active Substance: EPINEPHRINE
  2. ORTHO-CEPT [Concomitant]
     Active Substance: DESOGESTREL\ETHINYL ESTRADIOL
  3. LIDOCAINE/PRILOCAINE [Concomitant]
     Active Substance: LIDOCAINE\PRILOCAINE
  4. AMITRIPTYLINE [Concomitant]
     Active Substance: AMITRIPTYLINE
  5. ACETAMINOPHEN. [Concomitant]
     Active Substance: ACETAMINOPHEN
  6. DIPHENHYDRAMINE. [Concomitant]
     Active Substance: DIPHENHYDRAMINE
  7. BUTALBITAL-ASA-CAFFEINE [Concomitant]
  8. HIZENTRA [Suspect]
     Active Substance: HUMAN IMMUNOGLOBULIN G
     Indication: HYPOGAMMAGLOBULINAEMIA
     Route: 058
  9. LORTAB [Concomitant]
     Active Substance: ACETAMINOPHEN\HYDROCODONE BITARTRATE

REACTIONS (4)
  - Administration site bruise [Unknown]
  - Administration site nodule [Unknown]
  - Somnolence [Unknown]
  - Administration site haemorrhage [Unknown]
